FAERS Safety Report 6843581-0 (Version None)
Quarter: 2010Q3

REPORT INFORMATION
  Report Type: 
  Country: None (occurrence: None)
  Receive Date: 20100712
  Receipt Date: 20100630
  Transmission Date: 20110219
  Serious: Yes (Life-Threatening)
  Sender: FDA-Public Use
  Company Number: 2010MA000454

PATIENT
  Age: 15 Year
  Sex: Female

DRUGS (1)
  1. FEVERALL [Suspect]

REACTIONS (4)
  - AGITATION [None]
  - OVERDOSE [None]
  - POOR QUALITY SLEEP [None]
  - SUICIDAL IDEATION [None]
